FAERS Safety Report 16352452 (Version 1)
Quarter: 2019Q2

REPORT INFORMATION
  Report Type: Spontaneous
  Country: US (occurrence: US)
  Receive Date: 20190418
  Receipt Date: 20190418
  Transmission Date: 20190711
  Serious: Yes (Other)
  Sender: FDA-Public Use
  Company Number: None

PATIENT
  Age: 68 Year
  Sex: Female
  Weight: 83.91 kg

DRUGS (1)
  1. AZITHROMYCIN TABLETS 250MG DISTRAN TEC GREENSTONE LLC PEAPOCK, NJ 07977-MADE IN INDIA [Suspect]
     Active Substance: AZITHROMYCIN ANHYDROUS
     Indication: PHARYNGITIS STREPTOCOCCAL
     Dosage: ?          QUANTITY:6 DF DOSAGE FORM;OTHER FREQUENCY:2  1ST DAY; 1/DAY;?
     Route: 048
     Dates: start: 20190326, end: 20190330

REACTIONS (7)
  - Eructation [None]
  - Headache [None]
  - Nausea [None]
  - Vomiting [None]
  - Eating disorder [None]
  - Dizziness [None]
  - Balance disorder [None]

NARRATIVE: CASE EVENT DATE: 20190327
